FAERS Safety Report 19020326 (Version 1)
Quarter: 2021Q1

REPORT INFORMATION
  Report Type: Spontaneous
  Country: US (occurrence: US)
  Receive Date: 20210317
  Receipt Date: 20210317
  Transmission Date: 20210420
  Serious: No
  Sender: FDA-Public Use
  Company Number: US-BAYER-2021-106466

PATIENT
  Age: 80 Year
  Sex: Female

DRUGS (2)
  1. ALEVE [Suspect]
     Active Substance: NAPROXEN SODIUM
     Indication: SWELLING
  2. ALEVE [Suspect]
     Active Substance: NAPROXEN SODIUM
     Indication: ANALGESIC INTERVENTION SUPPORTIVE THERAPY
     Dosage: ACCORDING TO LABEL
     Route: 048
     Dates: start: 20210228, end: 20210301

REACTIONS (1)
  - Drug effective for unapproved indication [None]
